FAERS Safety Report 13648660 (Version 1)
Quarter: 2017Q2

REPORT INFORMATION
  Report Type: Report from Study
  Country: BR (occurrence: BR)
  Receive Date: 20170613
  Receipt Date: 20170613
  Transmission Date: 20170830
  Serious: Yes (Other)
  Sender: FDA-Public Use
  Company Number: PHHY2017BR086906

PATIENT
  Sex: Female
  Weight: 60 kg

DRUGS (3)
  1. CALCIUM [Suspect]
     Active Substance: CALCIUM
     Indication: PRODUCT USED FOR UNKNOWN INDICATION
     Dosage: 600 MG, BID (IN THE MORNING AND AT NIGHT)
     Route: 065
  2. OSCAL [Suspect]
     Active Substance: CALCIUM CARBONATE
     Indication: PRODUCT USED FOR UNKNOWN INDICATION
     Route: 065
  3. ACLASTA [Suspect]
     Active Substance: ZOLEDRONIC ACID
     Indication: PRODUCT USED FOR UNKNOWN INDICATION
     Dosage: 1 DF (5MG/100ML), Q12MO
     Route: 042

REACTIONS (5)
  - Gastrooesophageal reflux disease [Unknown]
  - Drug intolerance [Unknown]
  - Lactose intolerance [Unknown]
  - Intestinal obstruction [Unknown]
  - Vomiting [Unknown]
